FAERS Safety Report 6155491-5 (Version None)
Quarter: 2009Q2

REPORT INFORMATION
  Report Type: 
  Country: None (occurrence: None)
  Receive Date: 20090415
  Receipt Date: 20090409
  Transmission Date: 20091009
  Serious: Yes (Death)
  Sender: FDA-Public Use
  Company Number: JP-ASTRAZENECA-2009AP02028

PATIENT
  Age: 23934 Day
  Sex: Female
  Weight: 46 kg

DRUGS (4)
  1. IRESSA [Suspect]
     Indication: LUNG NEOPLASM MALIGNANT
     Route: 048
     Dates: start: 20060214, end: 20090306
  2. CONIEL [Concomitant]
     Indication: HYPERTENSION
     Route: 048
     Dates: start: 20020809, end: 20090306
  3. NEUROVITAN [Concomitant]
     Indication: NEURALGIA
     Route: 048
     Dates: start: 20060725, end: 20090306
  4. BENIDIPINE HYDROCHLORIDE [Concomitant]
     Indication: HYPERTENSION
     Route: 048
     Dates: start: 20020809, end: 20090306

REACTIONS (1)
  - LEUKOENCEPHALOPATHY [None]
